FAERS Safety Report 13261002 (Version 1)
Quarter: 2017Q1

REPORT INFORMATION
  Report Type: Spontaneous
  Country: DE (occurrence: DE)
  Receive Date: 20170222
  Receipt Date: 20170222
  Transmission Date: 20170428
  Serious: Yes (Hospitalization)
  Sender: FDA-Public Use
  Company Number: DE-ELI_LILLY_AND_COMPANY-DE201702006943

PATIENT
  Sex: Male

DRUGS (5)
  1. VALSARTAN. [Concomitant]
     Active Substance: VALSARTAN
     Dosage: UNK, UNKNOWN
     Route: 065
  2. OMEPRAZOL                          /00661201/ [Concomitant]
     Active Substance: OMEPRAZOLE
     Dosage: UNK, UNKNOWN
     Route: 065
  3. CIALIS [Suspect]
     Active Substance: TADALAFIL
     Indication: ERECTILE DYSFUNCTION
     Dosage: 5 MG, UNKNOWN
     Route: 048
     Dates: start: 20170120, end: 20170124
  4. LOSARTAN. [Concomitant]
     Active Substance: LOSARTAN
     Dosage: UNK, UNKNOWN
     Route: 065
  5. L ARGININ [Concomitant]
     Dosage: UNK, UNKNOWN
     Route: 065

REACTIONS (14)
  - Decreased appetite [Unknown]
  - Aspermia [Unknown]
  - Tremor [Unknown]
  - Dysuria [Unknown]
  - Lacrimation increased [Unknown]
  - Back pain [Unknown]
  - Restlessness [Unknown]
  - Diarrhoea [Unknown]
  - Fatigue [Unknown]
  - Dizziness [Unknown]
  - Cardiac disorder [Unknown]
  - Gastrointestinal disorder [Unknown]
  - Nausea [Unknown]
  - Myalgia [Unknown]
